FAERS Safety Report 4707088-9 (Version None)
Quarter: 2005Q2

REPORT INFORMATION
  Report Type: 
  Country: None (occurrence: None)
  Receive Date: 20050113
  Receipt Date: 20050113
  Transmission Date: 20051028
  Serious: Yes (Other)
  Sender: FDA-Public Use
  Company Number: None

PATIENT
  Age: 89 Year
  Sex: Female
  Weight: 65.318 kg

DRUGS (1)
  1. TRAMADOL HCL [Suspect]
     Indication: INTERVERTEBRAL DISC DEGENERATION
     Dosage: 50 MG 1 Q 8 HRS PRN FOR PAIN
     Dates: start: 20040927, end: 20041010

REACTIONS (3)
  - ABDOMINAL DISCOMFORT [None]
  - DRUG INEFFECTIVE [None]
  - PHARMACEUTICAL PRODUCT COMPLAINT [None]
